FAERS Safety Report 12618817 (Version 1)
Quarter: 2016Q3

REPORT INFORMATION
  Report Type: Spontaneous
  Country: TR (occurrence: TR)
  Receive Date: 20160803
  Receipt Date: 20160803
  Transmission Date: 20161109
  Serious: Yes (Other)
  Sender: FDA-Public Use
  Company Number: TR-PFIZER INC-2016366149

PATIENT

DRUGS (1)
  1. XELJANZ [Suspect]
     Active Substance: TOFACITINIB CITRATE
     Dosage: 5 MG, UNK

REACTIONS (7)
  - Abasia [Unknown]
  - Malaise [Unknown]
  - Rash [Unknown]
  - Abdominal pain upper [Unknown]
  - Head discomfort [Unknown]
  - Asthenia [Unknown]
  - Dysphagia [Unknown]
